FAERS Safety Report 5553820-4 (Version None)
Quarter: 2007Q4

REPORT INFORMATION
  Report Type: 
  Country: None (occurrence: None)
  Receive Date: 20071130
  Receipt Date: 20070712
  Transmission Date: 20080405
  Serious: Yes (Hospitalization)
  Sender: FDA-Public Use
  Company Number: US200705005444

PATIENT
  Age: 54 Year
  Sex: Male

DRUGS (11)
  1. BYETTA [Suspect]
     Dosage: 5 UG, 2/D, SUBCUTANEOUS; 10 UG, 2/D,
     Route: 058
     Dates: start: 20060526, end: 20060626
  2. BYETTA [Suspect]
     Dosage: 5 UG, 2/D, SUBCUTANEOUS; 10 UG, 2/D,
     Route: 058
     Dates: start: 20060626, end: 20070424
  3. EXENATIDE 10MCG PEN, DISPOSABLE DEVICE (EXENATIDE PEN (10MCG)) PEN,DIS [Concomitant]
  4. AMARYL [Concomitant]
  5. AVANDAMET [Concomitant]
  6. NAPROSYN [Concomitant]
  7. LISINOPRIL [Concomitant]
  8. NORVASC [Concomitant]
  9. LANTUS [Concomitant]
  10. ALLOPURINOL [Concomitant]
  11. HUMIRA [Concomitant]

REACTIONS (1)
  - PANCREATITIS [None]
